FAERS Safety Report 19406350 (Version 1)
Quarter: 2021Q2

REPORT INFORMATION
  Report Type: Spontaneous
  Country: US (occurrence: US)
  Receive Date: 20210611
  Receipt Date: 20210611
  Transmission Date: 20210717
  Serious: No
  Sender: FDA-Public Use
  Company Number: US-B.I. PHARMACEUTICALS,INC./RIDGEFIELD-2021-BI-109129

PATIENT
  Age: 51 Year
  Sex: Female

DRUGS (2)
  1. TRULICITY [Concomitant]
     Active Substance: DULAGLUTIDE
     Indication: PRODUCT USED FOR UNKNOWN INDICATION
     Route: 065
     Dates: start: 2019
  2. JARDIANCE [Suspect]
     Active Substance: EMPAGLIFLOZIN
     Indication: BLOOD GLUCOSE FLUCTUATION
     Dosage: 25MG ONCE DALY IN THE MORNING
     Route: 065
     Dates: start: 2019

REACTIONS (5)
  - Fatigue [Not Recovered/Not Resolved]
  - Feeling jittery [Not Recovered/Not Resolved]
  - Thirst [Not Recovered/Not Resolved]
  - Asthenia [Not Recovered/Not Resolved]
  - Blood glucose increased [Not Recovered/Not Resolved]

NARRATIVE: CASE EVENT DATE: 202105
